FAERS Safety Report 4380171-6 (Version None)
Quarter: 2004Q2

REPORT INFORMATION
  Report Type: 
  Country: None (occurrence: None)
  Receive Date: 20040614
  Receipt Date: 20040412
  Transmission Date: 20050107
  Serious: No
  Sender: FDA-Public Use
  Company Number: MO4-341-138

PATIENT
  Sex: Female

DRUGS (1)
  1. VELCADE [Suspect]
     Indication: LYMPHOMA

REACTIONS (1)
  - MEDICATION ERROR [None]
